FAERS Safety Report 23028202 (Version 1)
Quarter: 2023Q4

REPORT INFORMATION
  Report Type: Spontaneous
  Country: BR (occurrence: BR)
  Receive Date: 20231004
  Receipt Date: 20231004
  Transmission Date: 20240109
  Serious: Yes (Other)
  Sender: FDA-Public Use
  Company Number: BR-PFIZER INC-PV202300160088

PATIENT
  Age: 72 Year
  Sex: Female

DRUGS (1)
  1. PIPERACILLIN SODIUM\TAZOBACTAM SODIUM [Suspect]
     Active Substance: PIPERACILLIN SODIUM\TAZOBACTAM SODIUM
     Indication: Peritonitis
     Dosage: UNK

REACTIONS (8)
  - Systemic candida [Unknown]
  - Pneumonia pseudomonal [Unknown]
  - Diabetic metabolic decompensation [Unknown]
  - Renal impairment [Unknown]
  - Urinary tract candidiasis [Recovered/Resolved]
  - General physical health deterioration [Unknown]
  - Leukocytosis [Unknown]
  - Neutrophil toxic granulation present [Unknown]
